FAERS Safety Report 8189578-2 (Version None)
Quarter: 2012Q1

REPORT INFORMATION
  Report Type: 
  Country: None (occurrence: None)
  Receive Date: 20120302
  Receipt Date: 20120221
  Transmission Date: 20120608
  Serious: Yes (Hospitalization)
  Sender: FDA-Public Use
  Company Number: 2012SP009911

PATIENT
  Age: 14 Year
  Sex: Female

DRUGS (7)
  1. PREDNISOLONE [Concomitant]
  2. DESLORATADINE [Suspect]
     Indication: PRURIGO
     Dosage: UNK;PO, UNK;PO
     Route: 048
     Dates: start: 20111226
  3. DESLORATADINE [Suspect]
     Indication: PRURIGO
     Dosage: UNK;PO, UNK;PO
     Route: 048
     Dates: start: 20111203
  4. VALIUM [Suspect]
     Indication: EPILEPSY
     Dosage: UNK;PO
     Route: 048
     Dates: start: 20111222
  5. LAMICTAL [Suspect]
     Indication: EPILEPSY
     Dosage: 100 MG;BID;PO, UNK;PO
     Route: 048
     Dates: start: 20111220, end: 20111222
  6. LAMICTAL [Suspect]
     Indication: EPILEPSY
     Dosage: 100 MG;BID;PO, UNK;PO
     Route: 048
     Dates: start: 20111107, end: 20111220
  7. DEPAKENE [Suspect]
     Indication: EPILEPSY
     Dosage: UNK;PO
     Route: 048
     Dates: start: 20111226

REACTIONS (8)
  - DILATATION VENTRICULAR [None]
  - STAPHYLOCOCCAL SEPSIS [None]
  - PERICARDITIS [None]
  - PULMONARY EMBOLISM [None]
  - PULMONARY ARTERIAL HYPERTENSION [None]
  - PSEUDOMONAL SEPSIS [None]
  - PULMONARY INFARCTION [None]
  - DRUG RASH WITH EOSINOPHILIA AND SYSTEMIC SYMPTOMS [None]
